FAERS Safety Report 4950765-5 (Version None)
Quarter: 2006Q1

REPORT INFORMATION
  Report Type: 
  Country: None (occurrence: None)
  Receive Date: 20060322
  Receipt Date: 20060307
  Transmission Date: 20060701
  Serious: Yes (Other)
  Sender: FDA-Public Use
  Company Number: GBWYE455008MAR06

PATIENT
  Age: 54 Year
  Sex: Male
  Weight: 122 kg

DRUGS (13)
  1. ENBREL [Suspect]
     Indication: DRUG USE FOR UNKNOWN INDICATION
     Route: 058
     Dates: start: 20040616
  2. ENBREL [Suspect]
     Route: 058
  3. ISOSORBIDE MONONITRATE [Concomitant]
     Dosage: UNKNOWN
     Route: 065
  4. ACETYLSALICYLIC ACID SRT [Concomitant]
     Dosage: 75MG FREQUENCY UNKNOWN
     Route: 065
  5. ENALAPRIL MALEATE [Concomitant]
     Dosage: 30MG FREQUENCY UNKNOWN
     Route: 065
  6. LANSOPRAZOLE [Concomitant]
     Dosage: 30MG FREQUENCY UNKNOWN
     Route: 065
  7. FUROSEMIDE [Concomitant]
     Dosage: 120MG FREQUENCY UNKNOWN
     Route: 065
  8. SERENACE [Concomitant]
     Dosage: UNKNOWN
     Route: 065
  9. SALBUTAMOL [Concomitant]
     Dosage: UNKNOWN
     Route: 065
  10. CO-CODAMOL [Concomitant]
     Dosage: UNKNOWN
     Route: 065
  11. LYRICA [Concomitant]
     Dosage: UNKNOWN
     Route: 065
  12. TRAMADOL HCL [Concomitant]
     Dosage: UNKNOWN
     Route: 065
  13. INDOMETHACIN [Concomitant]
     Dosage: UNKNOWN
     Route: 065

REACTIONS (2)
  - CARDIAC FAILURE [None]
  - CONDITION AGGRAVATED [None]
